FAERS Safety Report 7120285-0 (Version None)
Quarter: 2010Q4

REPORT INFORMATION
  Report Type: 
  Country: None (occurrence: None)
  Receive Date: 20101123
  Receipt Date: 20101111
  Transmission Date: 20110411
  Serious: Yes (Hospitalization)
  Sender: FDA-Public Use
  Company Number: US-MYLANLABS-2010S1021156

PATIENT
  Age: 22 Year
  Sex: Female

DRUGS (1)
  1. LAMOTRIGINE [Suspect]
     Indication: TEMPORAL LOBE EPILEPSY
     Route: 065

REACTIONS (9)
  - ALTERED STATE OF CONSCIOUSNESS [None]
  - ATAXIA [None]
  - DIZZINESS [None]
  - DRUG TOXICITY [None]
  - ELECTROCARDIOGRAM ABNORMAL [None]
  - FALL [None]
  - NAUSEA [None]
  - NYSTAGMUS [None]
  - VERTIGO [None]
